FAERS Safety Report 7206379-X (Version None)
Quarter: 2011Q1

REPORT INFORMATION
  Report Type: 
  Country: None (occurrence: None)
  Receive Date: 20110103
  Receipt Date: 20110103
  Transmission Date: 20110831
  Serious: Yes (Hospitalization)
  Sender: FDA-Public Use
  Company Number: PHHO2009US07633

PATIENT
  Sex: Male
  Weight: 82.7 kg

DRUGS (4)
  1. AFINITOR [Suspect]
     Dosage: 10 MG, QD
     Route: 048
     Dates: start: 20090612
  2. AFINITOR [Suspect]
     Indication: CARCINOID TUMOUR
     Dosage: 10 MG, QD
     Route: 048
     Dates: start: 20080324, end: 20090526
  3. SANDOSTATIN LAR [Concomitant]
     Indication: CARCINOID TUMOUR
     Dosage: UNK
  4. AFINITOR [Suspect]
     Dosage: NO TREATMENT
     Dates: start: 20090527, end: 20090611

REACTIONS (2)
  - PERICARDIAL EFFUSION [None]
  - PERICARDIAL EXCISION [None]
